FAERS Safety Report 18355028 (Version 1)
Quarter: 2020Q4

REPORT INFORMATION
  Report Type: Spontaneous
  Country: US (occurrence: US)
  Receive Date: 20201007
  Receipt Date: 20201007
  Transmission Date: 20210114
  Serious: Yes (Other)
  Sender: FDA-Public Use
  Company Number: US-BAYER-2020-214993

PATIENT
  Age: 61 Year
  Sex: Female

DRUGS (3)
  1. COUMADIN [Suspect]
     Active Substance: WARFARIN SODIUM
  2. HEPARIN [Suspect]
     Active Substance: HEPARIN SODIUM
  3. ASPIRIN (CARDIO) [Suspect]
     Active Substance: ASPIRIN
     Dosage: 325 MG

REACTIONS (2)
  - Labelled drug-drug interaction medication error [None]
  - Gastrointestinal haemorrhage [None]
